FAERS Safety Report 20608099 (Version 1)
Quarter: 2022Q1

REPORT INFORMATION
  Report Type: Spontaneous
  Country: US (occurrence: US)
  Receive Date: 20220317
  Receipt Date: 20220317
  Transmission Date: 20220423
  Serious: Yes (Disabling)
  Sender: FDA-Public Use
  Company Number: US-SA-SAC20220309001676

PATIENT
  Sex: Female

DRUGS (1)
  1. LARONIDASE [Suspect]
     Active Substance: LARONIDASE
     Indication: Mucopolysaccharidosis I
     Dosage: 64.00 MGS
     Route: 042
     Dates: start: 20191219

REACTIONS (1)
  - Wheelchair user [Unknown]

NARRATIVE: CASE EVENT DATE: 20210101
